FAERS Safety Report 21482700 (Version 1)
Quarter: 2022Q4

REPORT INFORMATION
  Report Type: Spontaneous
  Country: US (occurrence: None)
  Receive Date: 20221020
  Receipt Date: 20221020
  Transmission Date: 20230113
  Serious: Yes (Other)
  Sender: FDA-Public Use
  Company Number: US-ROCHE-3200809

PATIENT
  Sex: Female
  Weight: 67.964 kg

DRUGS (5)
  1. HERCEPTIN HYLECTA [Suspect]
     Active Substance: HYALURONIDASE-OYSK\TRASTUZUMAB
     Indication: HER2 positive breast cancer
     Route: 058
  2. HERCEPTIN [Suspect]
     Active Substance: TRASTUZUMAB
     Indication: HER2 positive breast cancer
     Route: 042
     Dates: start: 20220826
  3. PERJETA [Suspect]
     Active Substance: PERTUZUMAB
     Indication: HER2 positive breast cancer
     Dosage: FOR 12 WEEKS
     Route: 042
     Dates: start: 20220826
  4. ANASTROZOLE [Concomitant]
     Active Substance: ANASTROZOLE
  5. TAXOL [Concomitant]
     Active Substance: PACLITAXEL
     Indication: Breast conserving surgery
     Route: 042
     Dates: start: 20220826

REACTIONS (10)
  - Pneumonia bacterial [Recovered/Resolved]
  - Fatigue [Unknown]
  - Vision blurred [Unknown]
  - Lung disorder [Unknown]
  - Muscular weakness [Not Recovered/Not Resolved]
  - Infection [Unknown]
  - Chest discomfort [Not Recovered/Not Resolved]
  - Upper-airway cough syndrome [Unknown]
  - Hypotension [Unknown]
  - Total lung capacity abnormal [Unknown]
